FAERS Safety Report 4307343-0 (Version None)
Quarter: 2004Q1

REPORT INFORMATION
  Report Type: 
  Country: None (occurrence: None)
  Receive Date: 20040226
  Receipt Date: 20040217
  Transmission Date: 20041129
  Serious: Yes (Hospitalization)
  Sender: FDA-Public Use
  Company Number: 04P-163-0250424-00

PATIENT
  Age: 37 Year
  Sex: Male
  Weight: 113.3993 kg

DRUGS (3)
  1. SYNTHROID [Suspect]
     Indication: HYPOTHYROIDISM
     Dosage: 100 MCG, 1 IN 1 D, PER ORAL
     Route: 048
     Dates: start: 19991201
  2. PREDNISONE [Suspect]
     Dates: start: 20030701, end: 20030701
  3. ESOMEPRAZOLE [Concomitant]

REACTIONS (5)
  - ANXIETY [None]
  - CATARACT [None]
  - DEPRESSION [None]
  - TACHYCARDIA [None]
  - THROMBOSIS [None]
